FAERS Safety Report 23044231 (Version 1)
Quarter: 2023Q4

REPORT INFORMATION
  Report Type: Spontaneous
  Country: US (occurrence: US)
  Receive Date: 20231009
  Receipt Date: 20231009
  Transmission Date: 20240110
  Serious: No
  Sender: FDA-Public Use
  Company Number: US-AMNEAL PHARMACEUTICALS-2023-AMRX-02983

PATIENT
  Sex: Female
  Weight: 14.966 kg

DRUGS (1)
  1. VIGABATRIN [Suspect]
     Active Substance: VIGABATRIN
     Indication: Infantile spasms
     Dosage: MIX 01 PACKET IN 10 ML OF WATER THEN DRAW UP AND GIVE/TAKE 10 ML (500 MG) TWO TIMES A DAY
     Route: 048
     Dates: start: 202104

REACTIONS (1)
  - Strabismus [Unknown]
